FAERS Safety Report 5016991-4 (Version None)
Quarter: 2006Q2

REPORT INFORMATION
  Report Type: 
  Country: None (occurrence: None)
  Receive Date: 20060526
  Receipt Date: 20060510
  Transmission Date: 20061013
  Serious: Yes (Other)
  Sender: FDA-Public Use
  Company Number: US200605002460

PATIENT
  Age: 74 Year
  Sex: Male

DRUGS (2)
  1. CIALIS [Suspect]
     Indication: OFF LABEL USE
     Dosage: 10 MG
     Dates: start: 20060412, end: 20060505
  2. ASPIRIN [Concomitant]

REACTIONS (3)
  - BLINDNESS UNILATERAL [None]
  - OCULAR VASCULAR DISORDER [None]
  - VASCULAR INSUFFICIENCY [None]
